FAERS Safety Report 8427348-8 (Version None)
Quarter: 2012Q2

REPORT INFORMATION
  Report Type: 
  Country: None (occurrence: None)
  Receive Date: 20120323
  Receipt Date: 20110803
  Transmission Date: 20120825
  Serious: Yes (Hospitalization, Other)
  Sender: FDA-Public Use
  Company Number: 163-21880-11021773

PATIENT
  Age: 82 Year
  Sex: Male

DRUGS (8)
  1. MULTIVITAMIN [Concomitant]
  2. PAMIDRONATE DISODIUM [Concomitant]
  3. ASPIRIN [Concomitant]
  4. REVLIMID [Suspect]
     Indication: MULTIPLE MYELOMA
     Dosage: SEE IMAGE
     Route: 048
     Dates: start: 20110601
  5. REVLIMID [Suspect]
     Indication: MULTIPLE MYELOMA
     Dosage: SEE IMAGE
     Route: 048
     Dates: start: 20110101
  6. REVLIMID [Suspect]
     Indication: MULTIPLE MYELOMA
     Dosage: SEE IMAGE
     Route: 048
     Dates: start: 20101019, end: 20110127
  7. DEXAMETHASONE [Concomitant]
  8. SODIUM CHLORIDE [Concomitant]

REACTIONS (3)
  - BACTERAEMIA [None]
  - ANAEMIA [None]
  - PNEUMONIA PNEUMOCOCCAL [None]
